FAERS Safety Report 7185280-4 (Version None)
Quarter: 2010Q4

REPORT INFORMATION
  Report Type: 
  Country: None (occurrence: None)
  Receive Date: 20101123
  Receipt Date: 20100812
  Transmission Date: 20110411
  Serious: No
  Sender: FDA-Public Use
  Company Number: 017504

PATIENT
  Age: 31 Year
  Sex: Female

DRUGS (1)
  1. CERTOLIZUMAB PEGOL [Suspect]
     Indication: CROHN'S DISEASE

REACTIONS (1)
  - DRUG EXPOSURE DURING PREGNANCY [None]
